FAERS Safety Report 8309759-4 (Version None)
Quarter: 2012Q2

REPORT INFORMATION
  Report Type: 
  Country: None (occurrence: None)
  Receive Date: 20120425
  Receipt Date: 20120413
  Transmission Date: 20120825
  Serious: Yes (Hospitalization)
  Sender: FDA-Public Use
  Company Number: PHHY2012JP032113

PATIENT
  Sex: Female

DRUGS (6)
  1. RIVASTIGMINE [Suspect]
     Dosage: 18 MG/24 HRS
     Route: 062
     Dates: start: 20120218, end: 20120228
  2. RIVASTIGMINE [Suspect]
     Dosage: 9 MG/24 HRS
     Route: 062
     Dates: start: 20111224, end: 20120120
  3. RIVASTIGMINE [Suspect]
     Dosage: 13.5 MG/24 HRS
     Route: 062
     Dates: start: 20120121, end: 20120217
  4. RIVASTIGMINE [Suspect]
     Dosage: 18 MG/24 HRS
     Route: 062
     Dates: start: 20120317, end: 20120324
  5. RIVASTIGMINE [Suspect]
     Indication: DEMENTIA ALZHEIMER'S TYPE
     Dosage: 4.5 MG/24 HRS
     Route: 062
     Dates: start: 20111126, end: 20111223
  6. GALANTAMINE HYDROBROMIDE [Concomitant]
     Indication: DEMENTIA ALZHEIMER'S TYPE
     Dosage: 16 MG, UNK
     Route: 048
     Dates: start: 20111125

REACTIONS (7)
  - FAECAL INCONTINENCE [None]
  - SOMNOLENCE [None]
  - BEHAVIOURAL AND PSYCHIATRIC SYMPTOMS OF DEMENTIA [None]
  - LISTLESS [None]
  - BALANCE DISORDER [None]
  - DEMENTIA [None]
  - URINARY INCONTINENCE [None]
